FAERS Safety Report 5040571-8 (Version None)
Quarter: 2006Q2

REPORT INFORMATION
  Report Type: 
  Country: None (occurrence: None)
  Receive Date: 20060627
  Receipt Date: 20060627
  Transmission Date: 20061013
  Serious: No
  Sender: FDA-Public Use
  Company Number: None

PATIENT
  Age: 41 Year
  Sex: Female
  Weight: 68.0396 kg

DRUGS (1)
  1. HYDROXYZINE HCL [Suspect]
     Indication: HYPERSENSITIVITY
     Dosage: 25 MG -ONE TABLET- TID PO
     Route: 048
     Dates: start: 20060318, end: 20060623

REACTIONS (1)
  - NAIL DISCOLOURATION [None]
